FAERS Safety Report 15333993 (Version 1)
Quarter: 2018Q3

REPORT INFORMATION
  Report Type: Spontaneous
  Country: JP (occurrence: JP)
  Receive Date: 20180830
  Receipt Date: 20180830
  Transmission Date: 20181010
  Serious: Yes (Hospitalization, Other)
  Sender: FDA-Public Use
  Company Number: JP-REGENERON PHARMACEUTICALS, INC.-2018-30643

PATIENT

DRUGS (6)
  1. EYLEA [Suspect]
     Active Substance: AFLIBERCEPT
     Dosage: 2 MG, ONCE,LEFT EYE
     Route: 031
     Dates: start: 20180323, end: 20180323
  2. JOLETHIN                           /00082201/ [Concomitant]
     Indication: PRODUCT USED FOR UNKNOWN INDICATION
     Dosage: UNK
     Route: 048
     Dates: start: 20171204
  3. EYLEA [Suspect]
     Active Substance: AFLIBERCEPT
     Indication: RETINAL VEIN OCCLUSION
     Dosage: 2 MG, ONCE,LEFT EYE
     Route: 031
     Dates: start: 20171227
  4. EYLEA [Suspect]
     Active Substance: AFLIBERCEPT
     Dosage: 2 MG, ONCE,LEFT EYE
     Route: 031
     Dates: start: 20180713, end: 20180713
  5. ROZAGOOD [Concomitant]
     Indication: PRODUCT USED FOR UNKNOWN INDICATION
     Dosage: DAILY DOSE 150 MG
     Route: 048
     Dates: start: 20180104, end: 20180717
  6. MYDRIN P [Concomitant]
     Active Substance: PHENYLEPHRINE HYDROCHLORIDE\TROPICAMIDE
     Indication: MYDRIASIS

REACTIONS (5)
  - Endophthalmitis [Unknown]
  - Retinal vascular occlusion [Unknown]
  - Retinal haemorrhage [Unknown]
  - Hypopyon [Unknown]
  - Vitreous opacities [Unknown]

NARRATIVE: CASE EVENT DATE: 20180716
